FAERS Safety Report 5703965-0 (Version None)
Quarter: 2008Q2

REPORT INFORMATION
  Report Type: 
  Country: None (occurrence: None)
  Receive Date: 20080414
  Receipt Date: 20080409
  Transmission Date: 20081010
  Serious: Yes (Other)
  Sender: FDA-Public Use
  Company Number: JP-BRISTOL-MYERS SQUIBB COMPANY-14141584

PATIENT
  Age: 6 Year
  Sex: Female

DRUGS (4)
  1. IFOSFAMIDE [Suspect]
     Indication: LUNG NEOPLASM
     Dosage: 1 DOSAGE FORM = 12.5G/M2
  2. BUSULFAN [Suspect]
     Indication: LUNG NEOPLASM
  3. MELPHALAN [Suspect]
     Indication: LUNG NEOPLASM
  4. THIOTEPA [Suspect]
     Indication: LUNG NEOPLASM

REACTIONS (1)
  - THYROID CANCER [None]
